FAERS Safety Report 18364157 (Version 1)
Quarter: 2020Q4

REPORT INFORMATION
  Report Type: Report from Study
  Country: US (occurrence: US)
  Receive Date: 20201009
  Receipt Date: 20201009
  Transmission Date: 20210114
  Serious: No
  Sender: FDA-Public Use
  Company Number: US-TERSERA THERAPEUTICS LLC-US2020GSK064592

PATIENT

DRUGS (1)
  1. ROLAPITANT HYDROCHLORIDE [Suspect]
     Active Substance: ROLAPITANT
     Dosage: 2 DF, ()180 MG BY MOUTH 1-2 HOURS PRIOR TO CHEMOTHERAPY EVERY 3 WEEKS
     Route: 048
     Dates: start: 20200128

REACTIONS (1)
  - Nausea [Not Recovered/Not Resolved]
